FAERS Safety Report 9530359 (Version 2)
Quarter: 2013Q4

REPORT INFORMATION
  Report Type: Spontaneous
  Country: JP (occurrence: JP)
  Receive Date: 20130918
  Receipt Date: 20131230
  Transmission Date: 20140711
  Serious: Yes (Other)
  Sender: FDA-Public Use
  Company Number: JP-AMGEN-JPNSP2013065326

PATIENT
  Age: 82 Year
  Sex: Female

DRUGS (7)
  1. PRALIA [Suspect]
     Indication: OSTEOPOROSIS
     Dosage: 60 MG, UNK
     Route: 058
     Dates: start: 20130719, end: 20130719
  2. MICARDIS [Concomitant]
     Dosage: UNKNOWN
     Route: 065
  3. EPADEL-S [Concomitant]
     Dosage: UNKNOWN
     Route: 065
  4. SHOSAIKOTO [Concomitant]
     Dosage: UNKNOWN
     Route: 065
  5. XARELTO [Concomitant]
     Dosage: UNKNOWN
     Route: 065
  6. ZYLORIC [Concomitant]
     Dosage: UNKNOWN
     Route: 065
  7. LASIX                              /00032601/ [Concomitant]
     Dosage: UNKNOWN
     Route: 065

REACTIONS (2)
  - Back pain [Unknown]
  - Renal function test abnormal [Unknown]
